FAERS Safety Report 6400494-6 (Version None)
Quarter: 2009Q4

REPORT INFORMATION
  Report Type: 
  Country: None (occurrence: None)
  Receive Date: 20091007
  Receipt Date: 20091007
  Transmission Date: 20100525
  Serious: Yes (Other)
  Sender: FDA-Public Use
  Company Number: None

PATIENT
  Age: 70 Year
  Sex: Male
  Weight: 72.5755 kg

DRUGS (1)
  1. ZOLPIDEM [Suspect]
     Indication: INSOMNIA
     Dosage: 10 MG DAILY
     Dates: start: 20090501, end: 20090701

REACTIONS (3)
  - FEELING ABNORMAL [None]
  - MYALGIA [None]
  - PRODUCT SUBSTITUTION ISSUE [None]
